FAERS Safety Report 23622180 (Version 1)
Quarter: 2024Q1

REPORT INFORMATION
  Report Type: Spontaneous
  Country: CN (occurrence: CN)
  Receive Date: 20240312
  Receipt Date: 20240312
  Transmission Date: 20240410
  Serious: Yes (Hospitalization, Other)
  Sender: FDA-Public Use
  Company Number: CN-BRISTOL-MYERS SQUIBB COMPANY-2024-036547

PATIENT
  Age: 43 Year
  Sex: Female
  Weight: 55 kg

DRUGS (1)
  1. NIVOLUMAB [Suspect]
     Active Substance: NIVOLUMAB
     Indication: Lung adenocarcinoma
     Dates: start: 202006

REACTIONS (5)
  - Immune-mediated myocarditis [Unknown]
  - Immune-mediated encephalitis [Unknown]
  - Immune-mediated lung disease [Unknown]
  - Hypothalamo-pituitary disorder [Unknown]
  - Immune thrombocytopenia [Unknown]
